FAERS Safety Report 22280616 (Version 1)
Quarter: 2023Q2

REPORT INFORMATION
  Report Type: Spontaneous
  Country: US (occurrence: None)
  Receive Date: 20230502
  Receipt Date: 20230502
  Transmission Date: 20230721
  Serious: Yes (Hospitalization)
  Sender: FDA-Public Use
  Company Number: None

PATIENT
  Age: 52 Year
  Sex: Female
  Weight: 73.5 kg

DRUGS (1)
  1. BELATACEPT [Suspect]
     Active Substance: BELATACEPT
     Indication: Renal transplant
     Dosage: FREQUENCY : DAILY;?
     Route: 042
     Dates: start: 20221008

REACTIONS (4)
  - Kidney transplant rejection [None]
  - Transplant rejection [None]
  - Plasmapheresis [None]
  - Viraemia [None]

NARRATIVE: CASE EVENT DATE: 20230418
